FAERS Safety Report 4983859-9 (Version None)
Quarter: 2006Q2

REPORT INFORMATION
  Report Type: 
  Country: None (occurrence: None)
  Receive Date: 20060426
  Receipt Date: 20050706
  Transmission Date: 20061013
  Serious: Yes (Death, Hospitalization, Other)
  Sender: FDA-Public Use
  Company Number: FR-MERCK-0507FRA00028

PATIENT
  Age: 75 Year
  Sex: Female

DRUGS (4)
  1. FOSAMAX [Suspect]
     Indication: OSTEOPOROSIS
     Route: 048
     Dates: start: 20020101, end: 20050801
  2. OMEPRAZOLE [Concomitant]
     Route: 048
     Dates: end: 20040101
  3. GINKGO BILOBA EXTRACT [Concomitant]
     Indication: ANGIOPATHY
     Route: 048
     Dates: end: 20050801
  4. ACETAMINOPHEN [Concomitant]
     Route: 048
     Dates: end: 20050801

REACTIONS (4)
  - INFECTION [None]
  - LEUKOPENIA [None]
  - NEUTROPENIA [None]
  - PHARYNGITIS [None]
